FAERS Safety Report 11745571 (Version 1)
Quarter: 2015Q4

REPORT INFORMATION
  Report Type: Spontaneous
  Country: US (occurrence: None)
  Receive Date: 20151116
  Receipt Date: 20151116
  Transmission Date: 20160304
  Serious: No
  Sender: FDA-Public Use
  Company Number: None

PATIENT
  Age: 67 Year
  Sex: Male
  Weight: 90.72 kg

DRUGS (4)
  1. DOXAZOSIN MESYLATE. [Concomitant]
     Active Substance: DOXAZOSIN MESYLATE
  2. LUTEIN [Concomitant]
     Active Substance: LUTEIN
  3. DIOVAN [Concomitant]
     Active Substance: VALSARTAN
  4. BENICAR [Suspect]
     Active Substance: OLMESARTAN MEDOXOMIL
     Indication: HYPERTENSION
     Dosage: 1  PILL
     Route: 048
     Dates: start: 20141001, end: 20141115

REACTIONS (4)
  - Product substitution issue [None]
  - Rash [None]
  - Eczema [None]
  - Movement disorder [None]

NARRATIVE: CASE EVENT DATE: 20141101
